FAERS Safety Report 20997113 (Version 2)
Quarter: 2022Q2

REPORT INFORMATION
  Report Type: Spontaneous
  Country: CH (occurrence: CH)
  Receive Date: 20220623
  Receipt Date: 20220630
  Transmission Date: 20220721
  Serious: Yes (Life-Threatening, Hospitalization, Other)
  Sender: FDA-Public Use
  Company Number: CH-AMGEN-CHESP2022102595

PATIENT
  Age: 65 Year
  Sex: Male

DRUGS (9)
  1. XGEVA [Suspect]
     Active Substance: DENOSUMAB
     Indication: Hypercalcaemia of malignancy
     Dosage: 60 MILLIGRAM
     Route: 065
  2. CINACALCET HYDROCHLORIDE [Suspect]
     Active Substance: CINACALCET HYDROCHLORIDE
     Indication: Hypercalcaemia of malignancy
     Dosage: 30 MILLIGRAM, Q12H (DURING FIRST 4 DAYS)
     Route: 065
  3. CINACALCET HYDROCHLORIDE [Suspect]
     Active Substance: CINACALCET HYDROCHLORIDE
     Dosage: 120 MILLIGRAM, Q8H
     Route: 065
  4. SALINE [Concomitant]
     Active Substance: SODIUM CHLORIDE
     Dosage: 3000 MILLILITER (3000 ML OF NACL 0.9% ON DAY ONE)
     Route: 042
  5. SALINE [Concomitant]
     Active Substance: SODIUM CHLORIDE
     Dosage: 7000 MILLILITER
  6. PREDNISONE [Concomitant]
     Active Substance: PREDNISONE
     Dosage: 40 MILLIGRAM, QD
     Route: 048
  7. CALCITONIN [Concomitant]
     Active Substance: CALCITONIN
     Dosage: 2100 IU INTERNATIONAL UNIT(S) (2100 UL CUMULATED OVER 72 H)
     Route: 065
  8. CALCITONIN [Concomitant]
     Active Substance: CALCITONIN
     Dosage: UNK (ADMINISTERED 24 H AFTER ADMISSION TO THE ICU )
     Route: 058
  9. ZOLEDRONIC ACID [Concomitant]
     Active Substance: ZOLEDRONIC ACID
     Dosage: 4 MILLIGRAM
     Route: 042

REACTIONS (9)
  - Hypovolaemia [Unknown]
  - Fluid balance negative [Recovered/Resolved]
  - Atrial flutter [Unknown]
  - Metabolic acidosis [Unknown]
  - Acute kidney injury [Unknown]
  - Hypercalcaemia of malignancy [Recovered/Resolved]
  - Hypotension [Unknown]
  - Off label use [Unknown]
  - Drug resistance [Unknown]

NARRATIVE: CASE EVENT DATE: 20190601
